FAERS Safety Report 11178638 (Version 1)
Quarter: 2015Q2

REPORT INFORMATION
  Report Type: Spontaneous
  Country: US (occurrence: US)
  Receive Date: 20150610
  Receipt Date: 20150610
  Transmission Date: 20150821
  Serious: Yes (Death, Other)
  Sender: FDA-Public Use
  Company Number: US-CELGENE-USA-2015061635

PATIENT

DRUGS (3)
  1. VIDAZA [Suspect]
     Active Substance: AZACITIDINE
     Indication: MYELOFIBROSIS
     Route: 065
  2. RUXOLITINIB [Suspect]
     Active Substance: RUXOLITINIB
     Indication: MYELOFIBROSIS
     Route: 048
  3. RUXOLITINIB [Suspect]
     Active Substance: RUXOLITINIB
     Route: 048

REACTIONS (11)
  - Death [Fatal]
  - Nausea [Unknown]
  - Acute myeloid leukaemia [Unknown]
  - Toxicity to various agents [Unknown]
  - Thrombocytopenia [Unknown]
  - Drug ineffective [Unknown]
  - Joint injury [Unknown]
  - Fatigue [Unknown]
  - Therapeutic response decreased [Unknown]
  - Pneumonia [Unknown]
  - Neutropenia [Unknown]
